FAERS Safety Report 23702111 (Version 6)
Quarter: 2024Q2

REPORT INFORMATION
  Report Type: Spontaneous
  Country: US (occurrence: US)
  Receive Date: 20240403
  Receipt Date: 20240531
  Transmission Date: 20240716
  Serious: No
  Sender: FDA-Public Use
  Company Number: US-PFIZER INC-202400075813

PATIENT
  Age: 9 Year
  Sex: Female
  Weight: 23.59 kg

DRUGS (2)
  1. GENOTROPIN [Suspect]
     Active Substance: SOMATROPIN
     Indication: Growth hormone deficiency
     Dosage: 1.1 MILLIGRAMS, ONCE A DAY
  2. GENOTROPIN [Suspect]
     Active Substance: SOMATROPIN
     Dosage: 1.2 MG, DAILY
     Dates: start: 202401

REACTIONS (5)
  - Drug dose omission by device [Unknown]
  - Product prescribing error [Unknown]
  - Device physical property issue [Unknown]
  - Device issue [Unknown]
  - Device leakage [Unknown]
